FAERS Safety Report 7879379-4 (Version None)
Quarter: 2011Q4

REPORT INFORMATION
  Report Type: 
  Country: None (occurrence: None)
  Receive Date: 20111101
  Receipt Date: 20111027
  Transmission Date: 20120403
  Serious: Yes (Death, Hospitalization, Disabling, Other)
  Sender: FDA-Public Use
  Company Number: BR-ABBOTT-11P-020-0867139-00

PATIENT
  Sex: Female

DRUGS (1)
  1. HUMIRA [Suspect]
     Indication: RHEUMATOID ARTHRITIS
     Dosage: ONCE
     Dates: start: 20110901, end: 20110901

REACTIONS (13)
  - HAEMORRHAGE [None]
  - BACTERIAL TEST POSITIVE [None]
  - LACERATION [None]
  - RENAL IMPAIRMENT [None]
  - INFECTION [None]
  - IMMUNODEFICIENCY [None]
  - SKIN DISCOLOURATION [None]
  - COMA [None]
  - DIARRHOEA [None]
  - CARDIAC ARREST [None]
  - PERIPHERAL ISCHAEMIA [None]
  - KIDNEY INFECTION [None]
  - VOMITING [None]
